FAERS Safety Report 5657140-9 (Version None)
Quarter: 2008Q1

REPORT INFORMATION
  Report Type: 
  Country: None (occurrence: None)
  Receive Date: 20080310
  Receipt Date: 20080226
  Transmission Date: 20080703
  Serious: Yes (Hospitalization)
  Sender: FDA-Public Use
  Company Number: AU-AMGEN-US263786

PATIENT
  Sex: Male

DRUGS (6)
  1. PANITUMUMAB [Suspect]
     Indication: SQUAMOUS CELL CARCINOMA
     Route: 042
     Dates: start: 20071008
  2. MAGMIN [Concomitant]
  3. OMEPRAZOLE [Concomitant]
  4. CARBOPLATIN [Concomitant]
     Dates: start: 20080112
  5. FLUOROURACIL [Concomitant]
     Dates: start: 20080114, end: 20080118
  6. SPAN-K [Concomitant]

REACTIONS (1)
  - CATHETER SITE INFECTION [None]
